FAERS Safety Report 7705698-8 (Version None)
Quarter: 2011Q3

REPORT INFORMATION
  Report Type: 
  Country: None (occurrence: None)
  Receive Date: 20110824
  Receipt Date: 20110810
  Transmission Date: 20111222
  Serious: Yes (Hospitalization, Other)
  Sender: FDA-Public Use
  Company Number: AU-CELGENEUS-008-21880-11071009

PATIENT
  Sex: Female

DRUGS (5)
  1. OSTELIN [Concomitant]
     Dosage: 2 TABLET
     Route: 065
  2. BONEFOS [Concomitant]
     Route: 065
  3. VITAMIN D [Concomitant]
     Indication: VITAMIN D DEFICIENCY
     Route: 065
  4. REVLIMID [Suspect]
     Indication: MULTIPLE MYELOMA
     Dosage: 15 MILLIGRAM
     Route: 048
     Dates: start: 20110317
  5. PANTOPRAZOLE [Concomitant]
     Indication: GASTRITIS
     Dosage: 1 TABLET
     Route: 065

REACTIONS (2)
  - DIVERTICULUM INTESTINAL [None]
  - ELECTROLYTE IMBALANCE [None]
